FAERS Safety Report 8902664 (Version 1)
Quarter: 2012Q4

REPORT INFORMATION
  Report Type: 
  Country: IE (occurrence: IE)
  Receive Date: 20121112
  Receipt Date: 20121112
  Transmission Date: 20130627
  Serious: Yes (Other)
  Sender: FDA-Public Use
  Company Number: PHHY2012IE079950

PATIENT
  Age: 50 Year
  Sex: Male

DRUGS (1)
  1. ATORVASTATIN [Suspect]
     Dosage: 10 mg daily
     Route: 048
     Dates: start: 20120815, end: 20120828

REACTIONS (3)
  - Reflux gastritis [Recovered/Resolved]
  - Oral mucosal discolouration [Recovered/Resolved]
  - Dyspepsia [Recovered/Resolved]
